FAERS Safety Report 23744253 (Version 1)
Quarter: 2024Q2

REPORT INFORMATION
  Report Type: Spontaneous
  Country: US (occurrence: None)
  Receive Date: 20240414
  Receipt Date: 20240414
  Transmission Date: 20240716
  Serious: No
  Sender: FDA-Public Use
  Company Number: None

PATIENT
  Age: 65 Year
  Sex: Female
  Weight: 55.35 kg

DRUGS (1)
  1. PROLIA [Suspect]
     Active Substance: DENOSUMAB
     Indication: Osteoporosis
     Dosage: OTHER STRENGTH : NONE;?OTHER QUANTITY : 01 NONE;?OTHER FREQUENCY : NONE;?
     Route: 058
     Dates: start: 20231005, end: 20240408

REACTIONS (8)
  - Fatigue [None]
  - Pain in jaw [None]
  - Loose tooth [None]
  - Spinal pain [None]
  - Gait disturbance [None]
  - Insomnia [None]
  - Constipation [None]
  - Condition aggravated [None]

NARRATIVE: CASE EVENT DATE: 20231005
